FAERS Safety Report 16455612 (Version 1)
Quarter: 2019Q2

REPORT INFORMATION
  Report Type: Other
  Country: FR (occurrence: FR)
  Receive Date: 20190620
  Receipt Date: 20190620
  Transmission Date: 20190711
  Serious: Yes (Hospitalization)
  Sender: FDA-Public Use
  Company Number: FR-CELLTRION INC.-2019FR022115

PATIENT

DRUGS (2)
  1. RITUXIMAB (UNKNOWN) [Suspect]
     Active Substance: RITUXIMAB
     Indication: RELAPSING-REMITTING MULTIPLE SCLEROSIS
     Dosage: 1 G, EVERY 6 MONTHS
     Route: 042
     Dates: start: 20160824, end: 20190128
  2. QIZENDAY [Suspect]
     Active Substance: BIOTIN
     Indication: RELAPSING-REMITTING MULTIPLE SCLEROSIS
     Dosage: 3 DF, DAILY
     Route: 048
     Dates: start: 20170622, end: 201901

REACTIONS (2)
  - Product use in unapproved indication [Unknown]
  - Bile duct adenocarcinoma [Not Recovered/Not Resolved]

NARRATIVE: CASE EVENT DATE: 201901
